FAERS Safety Report 25188493 (Version 2)
Quarter: 2025Q2

REPORT INFORMATION
  Report Type: Other
  Country: DE (occurrence: DE)
  Receive Date: 20250411
  Receipt Date: 20250624
  Transmission Date: 20250716
  Serious: Yes (Other)
  Sender: MACLEODS
  Company Number: DE-MACLEODS PHARMA-MAC2025052573

PATIENT

DRUGS (4)
  1. LAMIVUDINE [Suspect]
     Active Substance: LAMIVUDINE
     Indication: HIV infection
     Dosage: (NUMBER OF COURSE WAS 1, NO PRIOR TO CONCEPTION DURING FIRST TRIMESTER)
     Route: 048
     Dates: start: 20241112
  2. ABACAVIR [Suspect]
     Active Substance: ABACAVIR
     Indication: HIV infection
     Dosage: (NUMBER OF COURSE WAS 1, NO PRIOR TO CONCEPTION DURING FIRST TRIMESTER)
     Route: 048
     Dates: start: 20241112
  3. TIVICAY [Suspect]
     Active Substance: DOLUTEGRAVIR SODIUM
     Indication: HIV infection
     Dosage: (NUMBER OF COURSE WAS 1, NO PRIOR TO CONCEPTION DURING FIRST TRIMESTER)
     Route: 048
     Dates: start: 20241112
  4. BIKTARVY [Suspect]
     Active Substance: BICTEGRAVIR SODIUM\EMTRICITABINE\TENOFOVIR ALAFENAMIDE FUMARATE
     Indication: HIV infection
     Dosage: TAB/CAPS (NUMBER OF COURSE WAS 1, NO PRIOR TO CONCEPTION DURING FIRST TRIMESTER)
     Route: 048
     Dates: start: 20241022, end: 20241112

REACTIONS (2)
  - Renal failure [Unknown]
  - Maternal exposure during pregnancy [Unknown]
